FAERS Safety Report 8479448-4 (Version None)
Quarter: 2012Q2

REPORT INFORMATION
  Report Type: 
  Country: None (occurrence: None)
  Receive Date: 20120402
  Receipt Date: 20120113
  Transmission Date: 20120825
  Serious: Yes (Life-Threatening, Hospitalization)
  Sender: FDA-Public Use
  Company Number: 2012ST000054

PATIENT
  Age: 8 Year
  Sex: Female
  Weight: 26 kg

DRUGS (1)
  1. ONCASPAR [Suspect]
     Indication: ACUTE LYMPHOCYTIC LEUKAEMIA
     Dosage: 2475 IU;X1;IV
     Route: 042
     Dates: start: 20120106, end: 20120106

REACTIONS (5)
  - VOMITING [None]
  - CHILLS [None]
  - HYPERSENSITIVITY [None]
  - NAUSEA [None]
  - PYREXIA [None]
